FAERS Safety Report 9915289 (Version 1)
Quarter: 2014Q1

REPORT INFORMATION
  Report Type: Report from Study
  Country: US (occurrence: US)
  Receive Date: 20140221
  Receipt Date: 20140221
  Transmission Date: 20141002
  Serious: Yes (Death)
  Sender: FDA-Public Use
  Company Number: US-ROCHE-1353050

PATIENT
  Sex: Female
  Weight: 103.7 kg

DRUGS (10)
  1. AVASTIN [Suspect]
     Indication: METASTASES TO OVARY
     Dosage: INFUSE OVER 30  MINS AT 200 ML/HR
     Route: 042
  2. AVASTIN [Suspect]
     Indication: UTERINE CANCER
     Route: 042
  3. AVASTIN [Suspect]
     Route: 042
  4. AVASTIN [Suspect]
     Route: 042
  5. AVASTIN [Suspect]
     Route: 042
  6. AVASTIN [Suspect]
     Route: 042
  7. ONDANSETRON [Concomitant]
     Indication: NAUSEA
     Dosage: INFUSE OVER 15 MINS AT 200 ML/HR
     Route: 042
  8. ONDANSETRON [Concomitant]
     Indication: VOMITING
  9. DEXAMETHASONE [Concomitant]
     Dosage: INFUSE OVER 15 MINS AT 200 ML/HR
     Route: 042
  10. GEMCITABINE [Concomitant]
     Dosage: INFUSE OVER 30  MINS AT 500 ML/HR
     Route: 042

REACTIONS (4)
  - Death [Fatal]
  - Nausea [Unknown]
  - Vomiting [Unknown]
  - Off label use [Unknown]
